FAERS Safety Report 24558037 (Version 1)
Quarter: 2024Q4

REPORT INFORMATION
  Report Type: Spontaneous
  Country: NO (occurrence: NO)
  Receive Date: 20241028
  Receipt Date: 20241028
  Transmission Date: 20250115
  Serious: Yes (Death, Hospitalization)
  Sender: NOVARTIS
  Company Number: NO-002147023-NVSC2024NO208629

PATIENT
  Age: 71 Year
  Sex: Male

DRUGS (3)
  1. MEKINIST [Suspect]
     Active Substance: TRAMETINIB DIMETHYL SULFOXIDE
     Indication: Product used for unknown indication
     Dosage: UNK
     Route: 065
     Dates: start: 20240610
  2. TAFINLAR [Suspect]
     Active Substance: DABRAFENIB MESYLATE
     Indication: Product used for unknown indication
     Dosage: UNK
     Route: 065
     Dates: start: 20240610
  3. CLOPIDOGREL [Concomitant]
     Active Substance: CLOPIDOGREL BISULFATE
     Indication: Cerebrovascular accident
     Dosage: UNK
     Route: 065
     Dates: start: 202305

REACTIONS (7)
  - Death [Fatal]
  - Pyrexia [Unknown]
  - General physical health deterioration [Unknown]
  - Disorientation [Unknown]
  - Communication disorder [Unknown]
  - Disorientation [Unknown]
  - Metastasis [Unknown]

NARRATIVE: CASE EVENT DATE: 20240702
